FAERS Safety Report 21359021 (Version 1)
Quarter: 2022Q3

REPORT INFORMATION
  Report Type: Other
  Country: NL (occurrence: NL)
  Receive Date: 20220921
  Receipt Date: 20220921
  Transmission Date: 20221026
  Serious: Yes (Life-Threatening)
  Sender: FDA-Public Use
  Company Number: None

PATIENT
  Sex: Female
  Weight: 76 kg

DRUGS (5)
  1. HALOPERIDOL [Interacting]
     Active Substance: HALOPERIDOL
     Indication: Delirium
     Dosage: UNK
     Route: 065
  2. HALOPERIDOL [Interacting]
     Active Substance: HALOPERIDOL
     Dosage: 1 MILLIGRAM, EVERY 12 HRS 2 X PER DAG 1 STUK
     Route: 065
     Dates: start: 20220907
  3. HALOPERIDOL [Interacting]
     Active Substance: HALOPERIDOL
     Dosage: UNK (DOSE DECREASED)
     Route: 065
  4. CITALOPRAM [Interacting]
     Active Substance: CITALOPRAM HYDROBROMIDE
     Indication: Depression
     Dosage: 40 MILLIGRAM, PER DAY (1 X PER DAY 1 PIECE)
     Route: 065
     Dates: start: 20200101
  5. POTASSIUM CHLORIDE [Concomitant]
     Active Substance: POTASSIUM CHLORIDE
     Indication: Product used for unknown indication
     Dosage: UNK, INFUSION FLUID, 3/9 MG/ML (MILLIGRAMS PER MILLILITER)
     Route: 065

REACTIONS (2)
  - Drug interaction [Recovered/Resolved]
  - Electrocardiogram QT prolonged [Recovered/Resolved]
